FAERS Safety Report 8795953 (Version 2)
Quarter: 2012Q4

REPORT INFORMATION
  Report Type: 
  Country: US (occurrence: US)
  Receive Date: 20120919
  Receipt Date: 20121022
  Transmission Date: 20130627
  Serious: Yes (Other)
  Sender: FDA-Public Use
  Company Number: US-ASTRAZENECA-2012SE70306

PATIENT
  Age: 71 Year
  Sex: Male
  Weight: 83.9 kg

DRUGS (4)
  1. NEXIUM [Suspect]
     Route: 048
  2. PRILOSEC [Suspect]
     Indication: GASTROOESOPHAGEAL REFLUX DISEASE
     Dosage: DAILY
     Route: 048
     Dates: start: 1989, end: 1990
  3. PRILOSEC [Suspect]
     Indication: GASTROOESOPHAGEAL REFLUX DISEASE
     Dosage: THREE TIMES A WEEK
     Route: 048
     Dates: start: 1990, end: 2003
  4. PRILOSEC OTC [Suspect]
     Indication: GASTROOESOPHAGEAL REFLUX DISEASE
     Route: 048
     Dates: start: 2003

REACTIONS (6)
  - Myocardial infarction [Unknown]
  - Gastrooesophageal reflux disease [Unknown]
  - Diabetes mellitus [Unknown]
  - Renal impairment [Unknown]
  - Therapeutic response unexpected [Unknown]
  - Drug dose omission [Unknown]
